FAERS Safety Report 8160927-4 (Version None)
Quarter: 2012Q1

REPORT INFORMATION
  Report Type: 
  Country: None (occurrence: None)
  Receive Date: 20120223
  Receipt Date: 20120217
  Transmission Date: 20120608
  Serious: Yes (Hospitalization)
  Sender: FDA-Public Use
  Company Number: FR-MERCK-1202FRA00096

PATIENT
  Age: 55 Year
  Sex: Male

DRUGS (9)
  1. LANSOPRAZOLE [Concomitant]
     Route: 048
  2. ISENTRESS [Suspect]
     Indication: HIV INFECTION
     Route: 048
     Dates: start: 20100812
  3. MARAVIROC [Suspect]
     Indication: HIV INFECTION
     Route: 048
     Dates: start: 20110510
  4. CHOLECALCIFEROL [Concomitant]
     Route: 065
  5. DARUNAVIR [Suspect]
     Indication: HIV INFECTION
     Route: 047
     Dates: start: 20090901
  6. RITONAVIR [Suspect]
     Indication: HIV INFECTION
     Route: 048
     Dates: start: 20051003
  7. BECLOMETHASONE DIPROPIONATE AND FORMOTEROL FUMARATE [Concomitant]
     Route: 055
  8. PERINDOPRIL [Suspect]
     Indication: HYPERTENSION
     Route: 048
     Dates: end: 20110720
  9. FLUOXETINE HYDROCHLORIDE [Concomitant]
     Route: 048

REACTIONS (1)
  - CEREBROVASCULAR ACCIDENT [None]
